FAERS Safety Report 6649886-0 (Version None)
Quarter: 2010Q1

REPORT INFORMATION
  Report Type: 
  Country: None (occurrence: None)
  Receive Date: 20100325
  Receipt Date: 20100318
  Transmission Date: 20100710
  Serious: Yes (Other)
  Sender: FDA-Public Use
  Company Number: US-BIOGENIDEC-2010BI009502

PATIENT
  Age: 44 Year
  Sex: Female

DRUGS (5)
  1. AVONEX [Suspect]
     Indication: MULTIPLE SCLEROSIS
     Route: 030
     Dates: start: 20010803
  2. NEURONTIN [Concomitant]
  3. CLOZAPINE [Concomitant]
  4. BACLOFEN [Concomitant]
  5. LEXAPRO [Concomitant]

REACTIONS (2)
  - DEPRESSED MOOD [None]
  - OVERDOSE [None]
